FAERS Safety Report 25193582 (Version 1)
Quarter: 2025Q2

REPORT INFORMATION
  Report Type: Spontaneous
  Country: FR (occurrence: FR)
  Receive Date: 20250414
  Receipt Date: 20250414
  Transmission Date: 20250716
  Serious: Yes (Other)
  Sender: MYLAN
  Company Number: None

PATIENT
  Sex: Male

DRUGS (4)
  1. NITROGLYCERIN [Suspect]
     Active Substance: NITROGLYCERIN
     Indication: Prinzmetal angina
     Dates: start: 20231214, end: 20240827
  2. VERAPAMIL [Suspect]
     Active Substance: VERAPAMIL HYDROCHLORIDE
     Indication: Prinzmetal angina
     Dosage: 280 MILLIGRAM, QD
     Dates: start: 20231214, end: 20240827
  3. NICORANDIL [Suspect]
     Active Substance: NICORANDIL
     Indication: Prinzmetal angina
     Dosage: 40 MILLIGRAM, QD
     Dates: start: 20231214, end: 20240827
  4. ASPIRIN [Suspect]
     Active Substance: ASPIRIN
     Indication: Prinzmetal angina
     Dosage: 100 MILLIGRAM, QD
     Dates: start: 20231214, end: 20240827

REACTIONS (2)
  - Foetal growth restriction [Recovering/Resolving]
  - Foetal exposure during pregnancy [Unknown]

NARRATIVE: CASE EVENT DATE: 20231214
